FAERS Safety Report 23482649 (Version 1)
Quarter: 2024Q1

REPORT INFORMATION
  Report Type: Spontaneous
  Country: CN (occurrence: CN)
  Receive Date: 20240205
  Receipt Date: 20240205
  Transmission Date: 20240410
  Serious: Yes (Hospitalization)
  Sender: FDA-Public Use
  Company Number: CN-ABBVIE-5623094

PATIENT
  Age: 43 Year
  Sex: Male

DRUGS (1)
  1. ADALIMUMAB [Suspect]
     Active Substance: ADALIMUMAB\ISOPROPYL ALCOHOL
     Indication: Psoriasis
     Route: 030

REACTIONS (3)
  - Pemphigus [Recovered/Resolved]
  - Psoriasis [Recovered/Resolved]
  - Off label use [Unknown]
